FAERS Safety Report 7769420-1 (Version None)
Quarter: 2011Q3

REPORT INFORMATION
  Report Type: 
  Country: None (occurrence: None)
  Receive Date: 20110922
  Receipt Date: 20100813
  Transmission Date: 20111222
  Serious: No
  Sender: FDA-Public Use
  Company Number: US-ASTRAZENECA-2010SE35546

PATIENT
  Age: 27 Year
  Sex: Male
  Weight: 81.6 kg

DRUGS (3)
  1. BUPROPION HCL [Concomitant]
  2. SEROQUEL [Suspect]
     Indication: BIPOLAR DISORDER
     Route: 048
     Dates: start: 20090101
  3. DEPAKOTE [Concomitant]

REACTIONS (3)
  - SOMNOLENCE [None]
  - FEELING DRUNK [None]
  - HYPERSOMNIA [None]
